FAERS Safety Report 22197678 (Version 1)
Quarter: 2023Q2

REPORT INFORMATION
  Report Type: Spontaneous
  Country: LV (occurrence: LV)
  Receive Date: 20230411
  Receipt Date: 20230411
  Transmission Date: 20230721
  Serious: Yes (Other)
  Sender: FDA-Public Use
  Company Number: LV-OTSUKA-2023_009188

PATIENT
  Age: 22 Year
  Sex: Male

DRUGS (3)
  1. ARIPIPRAZOLE [Suspect]
     Active Substance: ARIPIPRAZOLE
     Indication: Pseudohallucination
     Dosage: 15 MG
     Route: 065
  2. ARIPIPRAZOLE [Suspect]
     Active Substance: ARIPIPRAZOLE
     Indication: Somatic hallucination
  3. ARIPIPRAZOLE [Suspect]
     Active Substance: ARIPIPRAZOLE
     Indication: Anxiety

REACTIONS (4)
  - Somatic hallucination [Unknown]
  - Anxiety [Unknown]
  - Product use in unapproved indication [Unknown]
  - Refusal of treatment by patient [Unknown]
